FAERS Safety Report 4651962-9 (Version None)
Quarter: 2005Q2

REPORT INFORMATION
  Report Type: 
  Country: None (occurrence: None)
  Receive Date: 20050502
  Receipt Date: 20050502
  Transmission Date: 20051028
  Serious: No
  Sender: FDA-Public Use
  Company Number: None

PATIENT
  Age: 28 Year
  Sex: Female
  Weight: 61.2356 kg

DRUGS (1)
  1. INVANZ [Suspect]
     Indication: BREAST INFECTION
     Dosage: IV  QD
     Route: 042
     Dates: start: 20050416, end: 20050427

REACTIONS (2)
  - OEDEMA PERIPHERAL [None]
  - RASH [None]
